FAERS Safety Report 12675870 (Version 1)
Quarter: 2016Q3

REPORT INFORMATION
  Report Type: Spontaneous
  Country: US (occurrence: US)
  Receive Date: 20160823
  Receipt Date: 20160823
  Transmission Date: 20161109
  Serious: No
  Sender: FDA-Public Use
  Company Number: US-JAZZ-2016-US-006709

PATIENT
  Age: 35 Year
  Sex: Female

DRUGS (39)
  1. PRISTIQ EXTENDED-RELEASE [Concomitant]
     Active Substance: DESVENLAFAXINE SUCCINATE
  2. REZYST [Concomitant]
  3. PROTONIX [Concomitant]
     Active Substance: PANTOPRAZOLE SODIUM
  4. PRODRIN [Concomitant]
     Active Substance: ACETAMINOPHEN\CAFFEINE\ISOMETHEPTENE MUCATE
  5. AMITRIPTYLINE HCL [Concomitant]
     Active Substance: AMITRIPTYLINE
  6. ASPIRIN. [Concomitant]
     Active Substance: ASPIRIN
  7. AMBIEN [Concomitant]
     Active Substance: ZOLPIDEM TARTRATE
  8. KEPPRA [Concomitant]
     Active Substance: LEVETIRACETAM
  9. NEXIUM [Concomitant]
     Active Substance: ESOMEPRAZOLE MAGNESIUM
  10. BUTALBITAL, ACETAMINOPHEN, AND CAFFEINE [Concomitant]
     Active Substance: ACETAMINOPHEN\BUTALBITAL\CAFFEINE
  11. ERRIN [Concomitant]
     Active Substance: NORETHINDRONE
  12. LACTAID [Concomitant]
     Active Substance: LACTASE
  13. ZOFRAN [Concomitant]
     Active Substance: ONDANSETRON HYDROCHLORIDE
  14. NADOLOL. [Concomitant]
     Active Substance: NADOLOL
  15. RELPAX [Concomitant]
     Active Substance: ELETRIPTAN HYDROBROMIDE
  16. XANAX [Concomitant]
     Active Substance: ALPRAZOLAM
  17. PROMETHAZINE [Concomitant]
     Active Substance: PROMETHAZINE\PROMETHAZINE HYDROCHLORIDE
  18. MULTIVITAMINS [Concomitant]
     Active Substance: VITAMINS
  19. XYREM [Suspect]
     Active Substance: SODIUM OXYBATE
     Indication: INSOMNIA
     Dosage: 4.5 G, BID
     Route: 048
     Dates: start: 201304, end: 201307
  20. ALPRAZOLAM. [Concomitant]
     Active Substance: ALPRAZOLAM
  21. PRAVASTATIN. [Concomitant]
     Active Substance: PRAVASTATIN
  22. DIAZEPAM. [Concomitant]
     Active Substance: DIAZEPAM
  23. METHADONE HCL [Concomitant]
     Active Substance: METHADONE HYDROCHLORIDE
  24. MORPHINE SULF [Concomitant]
     Active Substance: MORPHINE SULFATE
  25. TRICOR [Concomitant]
     Active Substance: FENOFIBRATE
  26. XYREM [Suspect]
     Active Substance: SODIUM OXYBATE
     Dosage: 5 G, BID
     Route: 048
     Dates: start: 201307
  27. PROZAC [Concomitant]
     Active Substance: FLUOXETINE HYDROCHLORIDE
  28. CLINDAMYCIN HYDROCHLORIDE. [Concomitant]
     Active Substance: CLINDAMYCIN HYDROCHLORIDE
  29. LEVOTHYROXINE SODIUM. [Concomitant]
     Active Substance: LEVOTHYROXINE SODIUM
  30. NOVOLOG [Concomitant]
     Active Substance: INSULIN ASPART
  31. HUMALOG [Concomitant]
     Active Substance: INSULIN LISPRO
  32. NEOSALUS [Concomitant]
  33. MELATONIN [Concomitant]
     Active Substance: MELATONIN
  34. LEVAQUIN [Concomitant]
     Active Substance: LEVOFLOXACIN
  35. WELLBUTRIN [Concomitant]
     Active Substance: BUPROPION HYDROCHLORIDE
  36. CREON [Concomitant]
     Active Substance: PANCRELIPASE AMYLASE\PANCRELIPASE LIPASE\PANCRELIPASE PROTEASE
  37. LOVAZA [Concomitant]
     Active Substance: OMEGA-3-ACID ETHYL ESTERS
  38. CLONAZEPAM. [Concomitant]
     Active Substance: CLONAZEPAM
  39. CALCIUM [Concomitant]
     Active Substance: CALCIUM

REACTIONS (2)
  - Insomnia [Unknown]
  - Product taste abnormal [Unknown]

NARRATIVE: CASE EVENT DATE: 201604
